FAERS Safety Report 19690155 (Version 1)
Quarter: 2021Q3

REPORT INFORMATION
  Report Type: Spontaneous
  Country: IT (occurrence: IT)
  Receive Date: 20210812
  Receipt Date: 20210812
  Transmission Date: 20211014
  Serious: Yes (Other)
  Sender: FDA-Public Use
  Company Number: IT-LUPIN PHARMACEUTICALS INC.-2021-14369

PATIENT
  Age: 14 Year
  Sex: Male

DRUGS (5)
  1. METHYLPREDNISOLONE. [Suspect]
     Active Substance: METHYLPREDNISOLONE
     Dosage: UNK, PROGRESSIVELY REDUCED
     Route: 065
     Dates: start: 202103
  2. IMMUNOGLOBULIN (IMMUNOGLOBULIN HUMAN NORMAL) [Suspect]
     Active Substance: HUMAN IMMUNOGLOBULIN G
     Indication: MULTISYSTEM INFLAMMATORY SYNDROME IN CHILDREN
     Dosage: 2 GRAM PER KILOGRAM,  OVER 48 HOURS
     Route: 065
     Dates: start: 202103
  3. ASPIRIN. [Suspect]
     Active Substance: ASPIRIN
     Indication: THROMBOSIS PROPHYLAXIS
     Dosage: 3 MILLIGRAM/KILOGRAM, QD
     Route: 065
     Dates: start: 202103
  4. METHYLPREDNISOLONE. [Suspect]
     Active Substance: METHYLPREDNISOLONE
     Indication: MULTISYSTEM INFLAMMATORY SYNDROME IN CHILDREN
     Dosage: 10 MILLIGRAM/KILOGRAM, BID (PULSE METHYLPREDNISOLONE (10 MG/KG A BOLUS TWICE A DAY FOR 3 DAYS AND TH
     Route: 065
     Dates: start: 202103
  5. PREDNISONE. [Suspect]
     Active Substance: PREDNISONE
     Indication: MULTISYSTEM INFLAMMATORY SYNDROME IN CHILDREN
     Dosage: 1 MILLIGRAM/KILOGRAM, QD
     Route: 048
     Dates: start: 202103

REACTIONS (2)
  - Hepatic steatosis [Not Recovered/Not Resolved]
  - Off label use [Unknown]

NARRATIVE: CASE EVENT DATE: 202103
